FAERS Safety Report 6034493-3 (Version None)
Quarter: 2009Q1

REPORT INFORMATION
  Report Type: 
  Country: None (occurrence: None)
  Receive Date: 20090108
  Receipt Date: 20081213
  Transmission Date: 20090719
  Serious: Yes (Hospitalization)
  Sender: FDA-Public Use
  Company Number: 8040623

PATIENT
  Age: 16 Year
  Weight: 82 kg

DRUGS (1)
  1. KEPPRA [Suspect]
     Dosage: 500 MG 2/D

REACTIONS (3)
  - CHOREA [None]
  - ENCEPHALOPATHY [None]
  - RENAL FAILURE [None]
